FAERS Safety Report 11546648 (Version 1)
Quarter: 2015Q3

REPORT INFORMATION
  Report Type: Spontaneous
  Country: US (occurrence: US)
  Receive Date: 20150924
  Receipt Date: 20150924
  Transmission Date: 20151125
  Serious: Yes (Death, Hospitalization)
  Sender: FDA-Public Use
  Company Number: US-FRESENIUS KABI-FK201504479

PATIENT
  Age: 58 Year
  Sex: Female

DRUGS (2)
  1. GRANISETRON (MANUFACTURER UNKNOWN) (GRANISETRON HYDROCHLORIDE) [Suspect]
     Active Substance: GRANISETRON
     Indication: ANTIEMETIC SUPPORTIVE CARE
     Route: 065
  2. SERTRALINE [Suspect]
     Active Substance: SERTRALINE HYDROCHLORIDE
     Indication: PRODUCT USED FOR UNKNOWN INDICATION
     Route: 065

REACTIONS (3)
  - Posterior reversible encephalopathy syndrome [Fatal]
  - Drug interaction [Fatal]
  - Serotonin syndrome [Fatal]
